FAERS Safety Report 14100313 (Version 1)
Quarter: 2017Q4

REPORT INFORMATION
  Report Type: Spontaneous
  Country: FR (occurrence: FR)
  Receive Date: 20171017
  Receipt Date: 20171017
  Transmission Date: 20180321
  Serious: Yes (Hospitalization)
  Sender: FDA-Public Use
  Company Number: FR-PFIZER INC-2017439901

PATIENT
  Age: 38 Year
  Sex: Female

DRUGS (6)
  1. XANAX [Suspect]
     Active Substance: ALPRAZOLAM
     Dosage: 5 MG, SINGLE (20 TABLETS)
     Route: 048
     Dates: start: 20170828, end: 20170828
  2. IXPRIM [Suspect]
     Active Substance: ACETAMINOPHEN\TRAMADOL HYDROCHLORIDE
     Dosage: 190 DF, SINGLE
     Route: 048
     Dates: start: 20170828, end: 20170828
  3. LEXOMIL ROCHE [Suspect]
     Active Substance: BROMAZEPAM
     Dosage: 180 MG, SINGLE (30 TABLETS)
     Route: 048
     Dates: start: 20170828, end: 20170828
  4. LEXOMIL ROCHE [Suspect]
     Active Substance: BROMAZEPAM
     Dosage: 12 MG, 1X/DAY
     Route: 048
  5. LAROXYL [Suspect]
     Active Substance: AMITRIPTYLINE HYDROCHLORIDE
     Dosage: 50 GTT, 1X/DAY
     Route: 048
  6. LAROXYL [Suspect]
     Active Substance: AMITRIPTYLINE HYDROCHLORIDE
     Dosage: 20 ML, SINGLE
     Route: 048
     Dates: start: 20170828, end: 20170828

REACTIONS (7)
  - Suicide attempt [Recovered/Resolved]
  - Coma [Recovered/Resolved]
  - Overdose [Recovered/Resolved]
  - Bundle branch block right [Recovered/Resolved]
  - Hepatocellular injury [Recovered/Resolved]
  - Toxicity to various agents [Recovered/Resolved]
  - Tachycardia [Recovered/Resolved]

NARRATIVE: CASE EVENT DATE: 20170828
